FAERS Safety Report 15073164 (Version 1)
Quarter: 2018Q2

REPORT INFORMATION
  Report Type: Report from Study
  Country: US (occurrence: US)
  Receive Date: 20180627
  Receipt Date: 20180627
  Transmission Date: 20180711
  Serious: Yes (Hospitalization)
  Sender: FDA-Public Use
  Company Number: US-ROCHE-2138818

PATIENT
  Age: 69 Year
  Sex: Female
  Weight: 48.1 kg

DRUGS (3)
  1. ATEZOLIZUMAB. [Suspect]
     Active Substance: ATEZOLIZUMAB
     Indication: NON-SMALL CELL LUNG CANCER
     Dosage: ATEZOLIZUMAB 1200 MG C1D22 ON 06/FEB/2018, 1200 MG ON 04/APR/2018.?STRENGTH: 60 MG/ML
     Route: 042
     Dates: start: 20180108
  2. PARAPLATIN [Suspect]
     Active Substance: CARBOPLATIN
     Indication: NON-SMALL CELL LUNG CANCER
     Dosage: STRENGTH: 10 MG/ML.?HE RECEIVED CARBOPLATIN (220 MG) C1D8 ON 19/JAN/2018, (250 MG) C1D15 ON 30/JAN/2
     Route: 042
     Dates: start: 20180108
  3. TAXOL [Suspect]
     Active Substance: PACLITAXEL
     Indication: NON-SMALL CELL LUNG CANCER
     Dosage: STRENGTH: 6 MG/ML.?HE RECEIVED PACLITAXEL (50 MG/M2) C1D8 ON 19/JAN/2018, (50 MG/M2) C1D15 ON 30/JAN
     Route: 042
     Dates: start: 20180108

REACTIONS (1)
  - Cardiac failure congestive [Unknown]

NARRATIVE: CASE EVENT DATE: 20180501
